FAERS Safety Report 7546722-5 (Version None)
Quarter: 2011Q2

REPORT INFORMATION
  Report Type: 
  Country: None (occurrence: None)
  Receive Date: 20110614
  Receipt Date: 20110610
  Transmission Date: 20111010
  Serious: Yes (Death, Hospitalization)
  Sender: FDA-Public Use
  Company Number: A0892672A

PATIENT
  Age: 70 Year
  Sex: Female

DRUGS (1)
  1. AVANDIA [Suspect]
     Indication: DIABETES MELLITUS
     Dosage: 8MG PER DAY
     Route: 048
     Dates: start: 20010105, end: 20061121

REACTIONS (5)
  - CEREBROVASCULAR ACCIDENT [None]
  - RENAL FAILURE [None]
  - CORONARY ARTERY BYPASS [None]
  - DEATH [None]
  - CORONARY ARTERIAL STENT INSERTION [None]
